FAERS Safety Report 10470346 (Version 6)
Quarter: 2014Q4

REPORT INFORMATION
  Report Type: Report from Study
  Country: US (occurrence: US)
  Receive Date: 20140923
  Receipt Date: 20141114
  Transmission Date: 20150528
  Serious: Yes (Death, Hospitalization)
  Sender: FDA-Public Use
  Company Number: US-ACTELION-A-US2014-103571

PATIENT
  Age: 55 Year
  Sex: Male

DRUGS (3)
  1. VELETRI [Suspect]
     Active Substance: EPOPROSTENOL
     Indication: PULMONARY ARTERIAL HYPERTENSION
     Dosage: 12 NG/KG
     Route: 042
     Dates: start: 20140903, end: 20141010
  2. XARELTO [Concomitant]
     Active Substance: RIVAROXABAN
  3. TRACLEER [Suspect]
     Active Substance: BOSENTAN\BOSENTAN MONOHYDRATE
     Indication: PULMONARY ARTERIAL HYPERTENSION
     Dosage: UNK
     Route: 048
     Dates: end: 20141010

REACTIONS (18)
  - Embolism [Recovering/Resolving]
  - Syncope [Unknown]
  - Cardiac failure congestive [Recovering/Resolving]
  - Nausea [Unknown]
  - Diabetes mellitus [Recovering/Resolving]
  - Fatigue [Not Recovered/Not Resolved]
  - Headache [Unknown]
  - Oedema [Unknown]
  - Chest discomfort [Unknown]
  - Death [Fatal]
  - Haemoptysis [Unknown]
  - Chest pain [Unknown]
  - Malaise [Unknown]
  - Pain in extremity [Unknown]
  - Burning sensation [Unknown]
  - Renal disorder [Recovering/Resolving]
  - Dyspnoea [Not Recovered/Not Resolved]
  - Oedema peripheral [Unknown]

NARRATIVE: CASE EVENT DATE: 20140805
